FAERS Safety Report 6458251-0 (Version None)
Quarter: 2009Q4

REPORT INFORMATION
  Report Type: 
  Country: None (occurrence: None)
  Receive Date: 20091125
  Receipt Date: 20091119
  Transmission Date: 20100525
  Serious: Yes (Hospitalization)
  Sender: FDA-Public Use
  Company Number: US-AMGEN-QUU375831

PATIENT
  Sex: Female

DRUGS (2)
  1. ENBREL [Suspect]
     Indication: RHEUMATOID ARTHRITIS
     Route: 058
     Dates: start: 19981101
  2. LEFLUNOMIDE [Concomitant]
     Dates: end: 20090401

REACTIONS (2)
  - ARTHRALGIA [None]
  - KNEE ARTHROPLASTY [None]
